FAERS Safety Report 11804526 (Version 1)
Quarter: 2015Q4

REPORT INFORMATION
  Report Type: Spontaneous
  Country: AU (occurrence: AU)
  Receive Date: 20151204
  Receipt Date: 20151204
  Transmission Date: 20160305
  Serious: Yes (Death)
  Sender: FDA-Public Use
  Company Number: PHHY2015AU158389

PATIENT

DRUGS (8)
  1. LIDOCAINE. [Suspect]
     Active Substance: LIDOCAINE
     Indication: FOETAL EXPOSURE DURING PREGNANCY
     Route: 064
  2. PROPOFOL. [Suspect]
     Active Substance: PROPOFOL
     Dosage: 100 MG, UNK
     Route: 065
  3. ADRENALINE [Suspect]
     Active Substance: EPINEPHRINE
     Dosage: 0.75 UNK,
     Route: 042
  4. FENTANYL. [Suspect]
     Active Substance: FENTANYL
     Indication: FOETAL EXPOSURE DURING PREGNANCY
     Route: 064
  5. ADRENALINE [Suspect]
     Active Substance: EPINEPHRINE
     Indication: FOETAL EXPOSURE DURING PREGNANCY
     Dosage: 200 UG,
     Route: 064
  6. SUCCINYLCHOLINE CHLORIDE. [Suspect]
     Active Substance: SUCCINYLCHOLINE CHLORIDE
     Indication: FOETAL EXPOSURE DURING PREGNANCY
     Dosage: 150 MG,
     Route: 064
  7. ADRENALINE [Suspect]
     Active Substance: EPINEPHRINE
     Dosage: 400 UG,
     Route: 040
  8. PROPOFOL. [Suspect]
     Active Substance: PROPOFOL
     Indication: FOETAL EXPOSURE DURING PREGNANCY
     Dosage: 200 UNK, UNK
     Route: 064

REACTIONS (2)
  - Bradycardia foetal [Fatal]
  - Foetal exposure during pregnancy [Fatal]
